FAERS Safety Report 12200775 (Version 5)
Quarter: 2018Q2

REPORT INFORMATION
  Report Type: Report from Study
  Country: JP (occurrence: JP)
  Receive Date: 20160322
  Receipt Date: 20180417
  Transmission Date: 20180711
  Serious: Yes (Hospitalization)
  Sender: FDA-Public Use
  Company Number: JP-DSJP-DSJ-2015-135143AA

PATIENT

DRUGS (4)
  1. MEMARY [Concomitant]
     Active Substance: MEMANTINE HYDROCHLORIDE
     Dosage: 20 MG, QD
     Route: 048
     Dates: end: 20151101
  2. EDOXABAN [Suspect]
     Active Substance: EDOXABAN TOSYLATE
     Indication: ATRIAL FIBRILLATION
     Dosage: 30 MG, QD
     Route: 048
     Dates: start: 20150722, end: 20151101
  3. REMINYL [Concomitant]
     Active Substance: GALANTAMINE
     Dosage: 16MG/DAY
     Route: 048
     Dates: end: 20151101
  4. ZACRAS HD [Concomitant]
     Active Substance: AMLODIPINE BESYLATE\AZILSARTAN
     Dosage: 1DF/DAY
     Route: 048
     Dates: end: 20151101

REACTIONS (2)
  - Subdural haematoma [Unknown]
  - Fall [Recovered/Resolved]

NARRATIVE: CASE EVENT DATE: 20151101
